FAERS Safety Report 21906346 (Version 2)
Quarter: 2023Q1

REPORT INFORMATION
  Report Type: Spontaneous
  Country: US (occurrence: US)
  Receive Date: 20230125
  Receipt Date: 20230228
  Transmission Date: 20230418
  Serious: Yes (Hospitalization, Other)
  Sender: FDA-Public Use
  Company Number: US-SUN PHARMACEUTICAL INDUSTRIES LTD-2023R1-373893

PATIENT
  Age: 94 Year
  Sex: Male

DRUGS (1)
  1. SULFAMETHOXAZOLE\TRIMETHOPRIM [Suspect]
     Active Substance: SULFAMETHOXAZOLE\TRIMETHOPRIM
     Indication: Escherichia bacteraemia
     Dosage: BID
     Route: 048

REACTIONS (4)
  - Nephrolithiasis [Unknown]
  - Urine output decreased [Unknown]
  - Acute kidney injury [Unknown]
  - Hyperkalaemia [Unknown]
